FAERS Safety Report 8614747-4 (Version None)
Quarter: 2012Q3

REPORT INFORMATION
  Report Type: 
  Country: None (occurrence: None)
  Receive Date: 20120823
  Receipt Date: 20120816
  Transmission Date: 20120928
  Serious: Yes (Hospitalization)
  Sender: FDA-Public Use
  Company Number: GB-PFIZER INC-2012200399

PATIENT
  Age: 26 Year
  Sex: Female
  Weight: 39 kg

DRUGS (4)
  1. DOXYCYCLINE MONOHYDRATE [Suspect]
     Dosage: 100 MG, 1X/DAY
     Route: 048
     Dates: start: 20120728
  2. FLUOXETINE HCL [Concomitant]
     Dosage: FLUOXETINE WAS STOPPED WHILE ON ERYTHROMYCIN.
  3. FORTISIP [Concomitant]
  4. ERYTHROMYCIN [Concomitant]
     Indication: INFECTION
     Dosage: 250 MG, 4X/DAY
     Route: 048
     Dates: start: 20120613

REACTIONS (3)
  - MALAISE [None]
  - CONFUSIONAL STATE [None]
  - DYSKINESIA [None]
